FAERS Safety Report 10761859 (Version 1)
Quarter: 2015Q1

REPORT INFORMATION
  Report Type: Spontaneous
  Country: US (occurrence: None)
  Receive Date: 20150128
  Receipt Date: 20150128
  Transmission Date: 20150721
  Serious: Yes (Hospitalization, Other)
  Sender: FDA-Public Use
  Company Number: 1472844

PATIENT
  Age: 73 Year
  Sex: Female
  Weight: 92.53 kg

DRUGS (18)
  1. CYCLOBENZAPRINE [Concomitant]
     Active Substance: CYCLOBENZAPRINE
  2. HYDROXYCHLOROQUINE (HYDROXYCHLOROQUINE SULFATE) [Concomitant]
  3. OMEPRAZOLE. [Concomitant]
     Active Substance: OMEPRAZOLE
  4. KCL-RETARD ZYMA (POTASSIUM CHLORIDE) [Concomitant]
  5. EFFEXOR (VENLFAXINE HYDROCHLORIDE) [Concomitant]
  6. ASPIRIN. [Concomitant]
     Active Substance: ASPIRIN
  7. BACTRIM [Concomitant]
     Active Substance: SULFAMETHOXAZOLE\TRIMETHOPRIM
  8. CRESTOR [Concomitant]
     Active Substance: ROSUVASTATIN CALCIUM
  9. PLETAL [Concomitant]
     Active Substance: CILOSTAZOL
  10. FUROSEMIDE. [Concomitant]
     Active Substance: FUROSEMIDE
  11. PLAVIX (CLOPIDOGREL BISULFATE) [Concomitant]
  12. GABAPENTIN. [Concomitant]
     Active Substance: GABAPENTIN
  13. SEROQUEL [Concomitant]
     Active Substance: QUETIAPINE FUMARATE
  14. RITUXAN [Suspect]
     Active Substance: RITUXIMAB
     Indication: RHEUMATOID ARTHRITIS
     Dosage: 2 EVERY TWO WEEKS
     Dates: start: 20140905, end: 20140919
  15. BUSPAR (BUSPIRONE HYDROCHLORIDE) [Concomitant]
  16. PREDNISONE (PREDNISONE) [Suspect]
     Active Substance: PREDNISONE
     Indication: RHEUMATOID ARTHRITIS
  17. NORVASC [Concomitant]
     Active Substance: AMLODIPINE BESYLATE
  18. FERROUS SO4 (FERROUS SULFATE) [Concomitant]

REACTIONS (3)
  - Cardiac failure congestive [None]
  - Dyspnoea [None]
  - Oedema peripheral [None]
